FAERS Safety Report 6986370-9 (Version None)
Quarter: 2010Q3

REPORT INFORMATION
  Report Type: 
  Country: None (occurrence: None)
  Receive Date: 20100915
  Receipt Date: 20090618
  Transmission Date: 20110219
  Serious: No
  Sender: FDA-Public Use
  Company Number: US-WYE-H09818809

PATIENT
  Sex: Male
  Weight: 122.58 kg

DRUGS (6)
  1. PRISTIQ [Suspect]
     Indication: DEPRESSION
     Route: 048
     Dates: start: 20090618
  2. KLONOPIN [Concomitant]
  3. ATENOLOL [Concomitant]
  4. METFORMIN [Concomitant]
  5. PROZAC [Concomitant]
  6. ATIVAN [Concomitant]

REACTIONS (1)
  - NAUSEA [None]
